FAERS Safety Report 5088364-X (Version None)
Quarter: 2006Q3

REPORT INFORMATION
  Report Type: 
  Country: None (occurrence: None)
  Receive Date: 20060822
  Receipt Date: 20060810
  Transmission Date: 20061208
  Serious: Yes (Other)
  Sender: FDA-Public Use
  Company Number: 2006BH012782

PATIENT

DRUGS (6)
  1. VINORELBINE TARTRATE [Suspect]
     Indication: PROSTATE CANCER
     Dosage: 20 MG/M**2; UNK; IV
     Route: 042
  2. VINORELBINE TARTRATE [Suspect]
     Indication: PROSTATE CANCER
     Dosage: 20 MG/M**2; UNK; IV
     Route: 042
  3. FLUOROURACIL [Suspect]
     Indication: PROSTATE CANCER
     Dosage: 350 MG/M**2; UNK; IV
     Route: 042
  4. LEUCOVORIN CALCIUM [Suspect]
     Indication: PROSTATE CANCER
     Dosage: 100 MG/M**2; UNK; IV
     Route: 042
  5. DEXAMETHASONE [Concomitant]
  6. METOCLOPRAMIDE [Concomitant]

REACTIONS (1)
  - ASTHENIA [None]
